FAERS Safety Report 4914162-0 (Version None)
Quarter: 2006Q1

REPORT INFORMATION
  Report Type: 
  Country: None (occurrence: None)
  Receive Date: 20060216
  Receipt Date: 20060209
  Transmission Date: 20060701
  Serious: Yes (Hospitalization)
  Sender: FDA-Public Use
  Company Number: FR-BRISTOL-MYERS SQUIBB COMPANY-13279286

PATIENT
  Age: 54 Year
  Sex: Female

DRUGS (6)
  1. TAXOL [Suspect]
     Indication: BREAST CANCER
     Route: 042
     Dates: end: 20050613
  2. TAXOTERE [Suspect]
     Indication: BREAST CANCER
     Route: 042
     Dates: start: 20050313
  3. ENDOXAN [Concomitant]
     Indication: BREAST CANCER
     Route: 042
     Dates: start: 20050313
  4. FARMORUBICIN [Concomitant]
     Indication: BREAST CANCER
     Route: 042
     Dates: start: 20050313
  5. FLUOROURACIL [Concomitant]
     Indication: BREAST CANCER
  6. METHOTREXATE [Concomitant]
     Indication: BREAST CANCER

REACTIONS (1)
  - DERMATOMYOSITIS [None]
